FAERS Safety Report 22339311 (Version 1)
Quarter: 2023Q2

REPORT INFORMATION
  Report Type: Report from Study
  Country: US (occurrence: US)
  Receive Date: 20230518
  Receipt Date: 20230518
  Transmission Date: 20230721
  Serious: Yes (Other)
  Sender: FDA-Public Use
  Company Number: US-JAZZ PHARMACEUTICALS-2022-US-011026

PATIENT
  Sex: Female

DRUGS (5)
  1. XYWAV [Suspect]
     Active Substance: CALCIUM OXYBATE\MAGNESIUM OXYBATE\POTASSIUM OXYBATE\SODIUM OXYBATE
     Indication: Narcolepsy
     Dosage: 4.5 GRAM, BID
     Route: 048
     Dates: start: 202011
  2. XYWAV [Suspect]
     Active Substance: CALCIUM OXYBATE\MAGNESIUM OXYBATE\POTASSIUM OXYBATE\SODIUM OXYBATE
     Indication: Cataplexy
     Dosage: UNK (4.75 GRAMS FOR THE FIRST DOSE AND 4.25 GRAMS FOR THE SECOND DOSE)
  3. XYWAV [Suspect]
     Active Substance: CALCIUM OXYBATE\MAGNESIUM OXYBATE\POTASSIUM OXYBATE\SODIUM OXYBATE
     Indication: Somnolence
  4. CODEINE [Suspect]
     Active Substance: CODEINE
     Dosage: UNK
  5. SULFADIAZINE [Suspect]
     Active Substance: SULFADIAZINE
     Dosage: UNK

REACTIONS (4)
  - Hallucination [Unknown]
  - Sunburn [Unknown]
  - Intentional product use issue [Unknown]
  - Intentional dose omission [Unknown]
